FAERS Safety Report 9223418 (Version 6)
Quarter: 2015Q2

REPORT INFORMATION
  Report Type: Spontaneous
  Country: US (occurrence: US)
  Receive Date: 20130410
  Receipt Date: 20150422
  Transmission Date: 20150821
  Serious: Yes (Hospitalization, Disabling, Other)
  Sender: FDA-Public Use
  Company Number: US-MERCK-1304USA002517

PATIENT
  Sex: Female
  Weight: 48.4 kg

DRUGS (8)
  1. PREMPRO [Concomitant]
     Active Substance: ESTROGENS, CONJUGATED\MEDROXYPROGESTERONE ACETATE
     Route: 048
  2. CENTRUM (MINERALS (UNSPECIFIED) (+) VITAMINS (UNSPECIFIED)) [Concomitant]
     Indication: PRODUCT USED FOR UNKNOWN INDICATION
     Dosage: UNK, QD
     Route: 048
     Dates: start: 1999
  3. ASCORBIC ACID. [Concomitant]
     Active Substance: ASCORBIC ACID
     Indication: PRODUCT USED FOR UNKNOWN INDICATION
     Dosage: 1000 MG, QD
     Route: 048
     Dates: start: 1999
  4. CORTICOSTEROIDS (UNSPECIFIED) [Concomitant]
     Active Substance: UNSPECIFIED INGREDIENT
     Indication: PRODUCT USED FOR UNKNOWN INDICATION
     Dosage: UNK
     Dates: start: 1995
  5. FOSAMAX [Suspect]
     Active Substance: ALENDRONATE SODIUM
     Indication: OSTEOPOROSIS
     Dosage: 10 MG, UNK
     Route: 048
     Dates: start: 20001106
  6. FOSAMAX [Suspect]
     Active Substance: ALENDRONATE SODIUM
     Dosage: 70 MG, UNK
     Route: 048
     Dates: start: 200012, end: 200811
  7. CALCIUM D3 [Concomitant]
     Active Substance: CALCIUM\CHOLECALCIFEROL
     Indication: PRODUCT USED FOR UNKNOWN INDICATION
     Dosage: 1000 MG, UNK
     Route: 048
     Dates: start: 1999
  8. VITAMIN D [Concomitant]
     Active Substance: CHOLECALCIFEROL
     Indication: PRODUCT USED FOR UNKNOWN INDICATION
     Dosage: 50000 MG, QM
     Route: 048
     Dates: start: 1999

REACTIONS (45)
  - Medical device removal [Recovering/Resolving]
  - Hypothyroidism [Unknown]
  - Contusion [Unknown]
  - Fracture [Unknown]
  - Intramedullary rod insertion [Unknown]
  - Osteoarthritis [Unknown]
  - Femur fracture [Recovering/Resolving]
  - Fracture delayed union [Unknown]
  - Fall [Unknown]
  - Thrombosis [Unknown]
  - Anxiety [Unknown]
  - Depression [Unknown]
  - Increased tendency to bruise [Unknown]
  - Oedema peripheral [Unknown]
  - Foot fracture [Unknown]
  - Foot fracture [Not Recovered/Not Resolved]
  - Hypotension [Unknown]
  - Bone loss [Unknown]
  - Foot fracture [Unknown]
  - Vitamin D deficiency [Unknown]
  - Knee operation [Unknown]
  - Pain in extremity [Unknown]
  - Constipation [Unknown]
  - Fracture nonunion [Recovering/Resolving]
  - Osteopenia [Unknown]
  - Osteoarthritis [Unknown]
  - Cellulitis [Recovered/Resolved]
  - Cardiac flutter [Unknown]
  - Open reduction of fracture [Unknown]
  - Hip arthroplasty [Recovering/Resolving]
  - Adrenocortical insufficiency acute [Unknown]
  - Femur fracture [Unknown]
  - Femur fracture [Unknown]
  - Wound [Unknown]
  - Drug ineffective [Unknown]
  - Vulvovaginal mycotic infection [Unknown]
  - Bone graft [Unknown]
  - Wrist fracture [Unknown]
  - Foot fracture [Unknown]
  - Hypertension [Unknown]
  - Medical device pain [Unknown]
  - Ulna fracture [Recovered/Resolved]
  - Dyslipidaemia [Unknown]
  - Fatigue [Unknown]
  - Fall [Unknown]

NARRATIVE: CASE EVENT DATE: 200011
